FAERS Safety Report 5202015-2 (Version None)
Quarter: 2007Q1

REPORT INFORMATION
  Report Type: 
  Country: None (occurrence: None)
  Receive Date: 20070109
  Receipt Date: 20061227
  Transmission Date: 20070707
  Serious: Yes (Hospitalization, Disabling)
  Sender: FDA-Public Use
  Company Number: US-JNJFOC-20060701052

PATIENT
  Sex: Female
  Weight: 47.63 kg

DRUGS (5)
  1. ORTHO EVRA [Suspect]
     Route: 062
  2. ORTHO EVRA [Suspect]
     Indication: MENSTRUAL DISORDER
     Route: 062
  3. ORTHO EVRA [Suspect]
     Indication: CONTRACEPTION
     Route: 062
  4. HUMULIN 70/30 [Concomitant]
     Indication: DIABETES MELLITUS INSULIN-DEPENDENT
  5. HUMULIN N [Concomitant]
     Indication: DIABETES MELLITUS INSULIN-DEPENDENT

REACTIONS (54)
  - AGITATION [None]
  - ANION GAP INCREASED [None]
  - ASTHENIA [None]
  - BACTERIAL INFECTION [None]
  - BLOOD CHLORIDE DECREASED [None]
  - BLOOD PH DECREASED [None]
  - CATHETER RELATED INFECTION [None]
  - CEREBRAL HAEMORRHAGE [None]
  - CEREBRAL ISCHAEMIA [None]
  - CEREBRAL VENOUS THROMBOSIS [None]
  - CLOSTRIDIUM DIFFICILE COLITIS [None]
  - COGNITIVE DISORDER [None]
  - COLD SWEAT [None]
  - CONFUSIONAL STATE [None]
  - CONVULSION [None]
  - DEEP VEIN THROMBOSIS [None]
  - DEHYDRATION [None]
  - DEPRESSION [None]
  - DIABETIC KETOACIDOSIS [None]
  - DRUG EXPOSURE DURING PREGNANCY [None]
  - ENCEPHALOPATHY [None]
  - ENTEROBACTER INFECTION [None]
  - FAECAL INCONTINENCE [None]
  - GASTRITIS [None]
  - GESTATIONAL DIABETES [None]
  - HAEMATOCRIT DECREASED [None]
  - HAEMOGLOBIN DECREASED [None]
  - HYPOGLYCAEMIA [None]
  - HYPOMAGNESAEMIA [None]
  - INTERNATIONAL NORMALISED RATIO DECREASED [None]
  - INTERNATIONAL NORMALISED RATIO INCREASED [None]
  - INTRACRANIAL VENOUS SINUS THROMBOSIS [None]
  - JOINT RANGE OF MOTION DECREASED [None]
  - LETHARGY [None]
  - LUNG INFECTION PSEUDOMONAL [None]
  - MALAISE [None]
  - MUSCLE CONTRACTURE [None]
  - MUSCLE SPASMS [None]
  - MUSCLE SPASTICITY [None]
  - NAUSEA [None]
  - NEUROGENIC BLADDER [None]
  - PAIN IN EXTREMITY [None]
  - PARONYCHIA [None]
  - PLATELET COUNT DECREASED [None]
  - PREGNANCY [None]
  - RESTLESSNESS [None]
  - SINUSITIS [None]
  - STAPHYLOCOCCAL SEPSIS [None]
  - SUBDURAL HAEMATOMA [None]
  - TACHYCARDIA [None]
  - UNRESPONSIVE TO STIMULI [None]
  - URINARY INCONTINENCE [None]
  - VISUAL DISTURBANCE [None]
  - VOMITING [None]
